FAERS Safety Report 9477052 (Version 1)
Quarter: 2013Q3

REPORT INFORMATION
  Report Type: Spontaneous
  Country: US (occurrence: US)
  Receive Date: 20130826
  Receipt Date: 20130826
  Transmission Date: 20140515
  Serious: Yes (Other)
  Sender: FDA-Public Use
  Company Number: US-BAYER-2013-101708

PATIENT
  Age: 41 Year
  Sex: Female

DRUGS (4)
  1. YAZ [Suspect]
  2. SYNTHROID [Concomitant]
  3. METRONIDAZOL [Concomitant]
     Dosage: UNK
     Dates: start: 20120316
  4. BEYAZ [Suspect]

REACTIONS (1)
  - Cerebrovascular accident [Recovering/Resolving]
